FAERS Safety Report 6643018-0 (Version None)
Quarter: 2010Q1

REPORT INFORMATION
  Report Type: 
  Country: None (occurrence: None)
  Receive Date: 20100319
  Receipt Date: 20100308
  Transmission Date: 20100710
  Serious: Yes (Hospitalization)
  Sender: FDA-Public Use
  Company Number: B0638144A

PATIENT
  Age: 64 Year
  Sex: Male

DRUGS (4)
  1. ZOPHREN [Suspect]
     Indication: PREMEDICATION
     Route: 042
     Dates: end: 20090101
  2. EMEND [Concomitant]
     Route: 065
  3. SOLU-MEDROL [Concomitant]
     Route: 042
  4. PRIMPERAN INJ [Concomitant]
     Route: 042

REACTIONS (7)
  - ALTERED STATE OF CONSCIOUSNESS [None]
  - ANAPHYLACTIC SHOCK [None]
  - DERMATITIS EXFOLIATIVE [None]
  - HYPOTENSION [None]
  - MALAISE [None]
  - PRURITUS [None]
  - RALES [None]
